FAERS Safety Report 24267101 (Version 1)
Quarter: 2024Q3

REPORT INFORMATION
  Report Type: Spontaneous
  Country: CA (occurrence: CA)
  Receive Date: 20240830
  Receipt Date: 20240830
  Transmission Date: 20241017
  Serious: Yes (Other)
  Sender: CELLTRION
  Company Number: CA-CELLTRION INC.- 2021CA017461

PATIENT

DRUGS (3)
  1. TRUXIMA [Suspect]
     Active Substance: RITUXIMAB-ABBS
     Indication: Chronic inflammatory demyelinating polyradiculoneuropathy
     Dosage: 1000 MG Q2 WEEKS X 2 DOSES (4 VIALS OF TRUXIMA 500 MG)
     Route: 042
  2. TRUXIMA [Suspect]
     Active Substance: RITUXIMAB-ABBS
     Dosage: UNK
     Dates: start: 202001
  3. TRUXIMA [Suspect]
     Active Substance: RITUXIMAB-ABBS
     Dosage: 1000 MG Q 2 WEEKS X 2 DOSES (4 X 500 MG / VIAL = 2000 MG)

REACTIONS (4)
  - Chronic inflammatory demyelinating polyradiculoneuropathy [Unknown]
  - Disease recurrence [Unknown]
  - Loss of personal independence in daily activities [Unknown]
  - Off label use [Unknown]
